FAERS Safety Report 8697924 (Version 2)
Quarter: 2013Q4

REPORT INFORMATION
  Report Type: Spontaneous
  Country: US (occurrence: US)
  Receive Date: 20120801
  Receipt Date: 20131105
  Transmission Date: 20140711
  Serious: Yes (Other)
  Sender: FDA-Public Use
  Company Number: US-009507513-1207USA011145

PATIENT
  Sex: Female

DRUGS (5)
  1. ZOCOR [Suspect]
  2. LIPITOR [Suspect]
  3. PRILOSEC [Suspect]
     Dosage: UNK
     Route: 048
  4. CRESTOR [Suspect]
     Route: 048
  5. NEXIUM [Suspect]
     Route: 048

REACTIONS (4)
  - Carotid artery occlusion [Unknown]
  - Drug effect decreased [Unknown]
  - Fatigue [Unknown]
  - Myalgia [Unknown]
